FAERS Safety Report 9264375 (Version 1)
Quarter: 2013Q2

REPORT INFORMATION
  Report Type: Spontaneous
  Country: US (occurrence: US)
  Receive Date: 20130430
  Receipt Date: 20130430
  Transmission Date: 20140414
  Serious: Yes (Hospitalization, Other)
  Sender: FDA-Public Use
  Company Number: US-BAXTER-2013BAX013450

PATIENT
  Age: 56 Year
  Sex: Male

DRUGS (1)
  1. DIANEAL LOW CALCIUM [Suspect]
     Indication: PERITONEAL DIALYSIS
     Route: 033
     Dates: start: 20121210

REACTIONS (5)
  - Multimorbidity [Unknown]
  - Flatulence [Unknown]
  - Hypotension [Recovering/Resolving]
  - Peritoneal cloudy effluent [Recovered/Resolved]
  - Abdominal pain [Recovered/Resolved]
